FAERS Safety Report 14788905 (Version 1)
Quarter: 2018Q2

REPORT INFORMATION
  Report Type: Spontaneous
  Country: FR (occurrence: FR)
  Receive Date: 20180423
  Receipt Date: 20180423
  Transmission Date: 20180711
  Serious: Yes (Hospitalization)
  Sender: FDA-Public Use
  Company Number: FR-MERCK KGAA-2046257

PATIENT
  Age: 58 Year
  Sex: Female

DRUGS (1)
  1. NOVOTHYROX [Suspect]
     Active Substance: LEVOTHYROXINE SODIUM
     Indication: PRODUCT USED FOR UNKNOWN INDICATION

REACTIONS (15)
  - Abdominal pain upper [None]
  - Asthenia [None]
  - Fear [None]
  - Blood thyroid stimulating hormone increased [None]
  - Hot flush [None]
  - Malaise [None]
  - Decreased appetite [None]
  - Diarrhoea [None]
  - Blood cholesterol increased [None]
  - Nervousness [None]
  - Muscle spasms [None]
  - Decreased activity [None]
  - Nausea [None]
  - Headache [None]
  - Mood swings [None]

NARRATIVE: CASE EVENT DATE: 201707
